FAERS Safety Report 10052861 (Version 2)
Quarter: 2014Q2

REPORT INFORMATION
  Report Type: Spontaneous
  Country: US (occurrence: US)
  Receive Date: 20140402
  Receipt Date: 20140506
  Transmission Date: 20141212
  Serious: Yes (Other)
  Sender: FDA-Public Use
  Company Number: US-PFIZER INC-2014091808

PATIENT
  Age: 50 Year
  Sex: Male
  Weight: 63.49 kg

DRUGS (2)
  1. LIPITOR [Suspect]
     Dosage: UNK
     Dates: end: 201204
  2. FISH OIL [Concomitant]
     Dosage: UNK

REACTIONS (3)
  - Diabetes mellitus [Unknown]
  - Amnesia [Unknown]
  - Renal disorder [Unknown]
